FAERS Safety Report 5165350-2 (Version None)
Quarter: 2006Q4

REPORT INFORMATION
  Report Type: 
  Country: None (occurrence: None)
  Receive Date: 20061206
  Receipt Date: 20060728
  Transmission Date: 20070319
  Serious: Yes (Hospitalization, Other)
  Sender: FDA-Public Use
  Company Number: US-BAYER-200613349BCC

PATIENT
  Age: 34 Year
  Sex: Female
  Weight: 82 kg

DRUGS (5)
  1. ALEVE [Suspect]
     Indication: NECK PAIN
     Route: 048
  2. COUMADIN [Interacting]
     Indication: DRUG USE FOR UNKNOWN INDICATION
  3. ELAVIL [Concomitant]
  4. GNC MULTIVITAMIN [Concomitant]
  5. IRON SUPPLEMENT [Concomitant]

REACTIONS (3)
  - HAEMORRHAGE [None]
  - HYPOTENSION [None]
  - INTERNATIONAL NORMALISED RATIO INCREASED [None]
